FAERS Safety Report 5020744-0 (Version None)
Quarter: 2006Q2

REPORT INFORMATION
  Report Type: 
  Country: None (occurrence: None)
  Receive Date: 20060601
  Receipt Date: 20060522
  Transmission Date: 20061013
  Serious: Yes (Life-Threatening, Other)
  Sender: FDA-Public Use
  Company Number: 2006067316

PATIENT
  Age: 35 Year
  Sex: Male

DRUGS (2)
  1. ROGAINE [Suspect]
     Indication: ALOPECIA
     Dosage: BID, TOPICAL
     Route: 061
     Dates: start: 20030101, end: 20060516
  2. FINASTERIDE [Suspect]
     Indication: ALOPECIA
     Dosage: ONCE DAILY, ORAL
     Route: 048
     Dates: start: 19990101, end: 20060516

REACTIONS (8)
  - DISTURBANCE IN ATTENTION [None]
  - DRY SKIN [None]
  - FEELING ABNORMAL [None]
  - HALLUCINATION [None]
  - SENSORY DISTURBANCE [None]
  - SKIN BURNING SENSATION [None]
  - SKIN DISORDER [None]
  - TESTICULAR DISORDER [None]
